FAERS Safety Report 17644572 (Version 1)
Quarter: 2020Q2

REPORT INFORMATION
  Report Type: Spontaneous
  Country: US (occurrence: US)
  Receive Date: 20200407
  Receipt Date: 20200407
  Transmission Date: 20200713
  Serious: Yes (Other)
  Sender: FDA-Public Use
  Company Number: None

PATIENT
  Age: 59 Year
  Sex: Female

DRUGS (15)
  1. SYNTHROID [Concomitant]
     Active Substance: LEVOTHYROXINE SODIUM
  2. LISINOPRIL. [Concomitant]
     Active Substance: LISINOPRIL
  3. COUMADIN [Concomitant]
     Active Substance: WARFARIN SODIUM
  4. PERCOCET [Concomitant]
     Active Substance: ACETAMINOPHEN\OXYCODONE HYDROCHLORIDE
  5. MVI [Concomitant]
     Active Substance: VITAMINS
  6. SIMVASTATIN. [Concomitant]
     Active Substance: SIMVASTATIN
  7. ZOFRAN [Concomitant]
     Active Substance: ONDANSETRON HYDROCHLORIDE
  8. MAGNESIUM OXIDE. [Concomitant]
     Active Substance: MAGNESIUM OXIDE
  9. SILDENAIL [Concomitant]
  10. CALCIUM AND VITAMIN D [Concomitant]
     Active Substance: CALCIUM\VITAMIN D
  11. AMIODARONE [Concomitant]
     Active Substance: AMIODARONE
  12. OPSUMIT [Suspect]
     Active Substance: MACITENTAN
     Indication: PULMONARY ARTERIAL HYPERTENSION
     Route: 048
     Dates: end: 201901
  13. LASIX [Concomitant]
     Active Substance: FUROSEMIDE
  14. METOPROLOL. [Concomitant]
     Active Substance: METOPROLOL
  15. ASPIRIN. [Concomitant]
     Active Substance: ASPIRIN

REACTIONS (4)
  - Fluid overload [None]
  - Cardiac failure acute [None]
  - Hypotension [None]
  - Nausea [None]

NARRATIVE: CASE EVENT DATE: 20200125
